FAERS Safety Report 9257826 (Version 1)
Quarter: 2013Q2

REPORT INFORMATION
  Report Type: Spontaneous
  Country: US (occurrence: US)
  Receive Date: 20130426
  Receipt Date: 20130426
  Transmission Date: 20140414
  Serious: No
  Sender: FDA-Public Use
  Company Number: US-GLAXOSMITHKLINE-A0982202A

PATIENT
  Sex: Female

DRUGS (2)
  1. ONDANSETRON [Suspect]
     Indication: NAUSEA
     Route: 065
  2. CANCER CHEMOTHERAPY [Concomitant]

REACTIONS (1)
  - Drug ineffective [Unknown]
